FAERS Safety Report 5061172-1 (Version None)
Quarter: 2006Q3

REPORT INFORMATION
  Report Type: 
  Country: None (occurrence: None)
  Receive Date: 20060720
  Receipt Date: 20060707
  Transmission Date: 20061208
  Serious: Yes (Death, Other)
  Sender: FDA-Public Use
  Company Number: 2006086834

PATIENT
  Sex: 0

DRUGS (2)
  1. GEODON [Suspect]
     Dosage: ORAL
     Route: 048
     Dates: start: 20060101, end: 20060101
  2. RITALIN [Concomitant]

REACTIONS (2)
  - DYSTONIA [None]
  - NEUROLEPTIC MALIGNANT SYNDROME [None]
